FAERS Safety Report 4596974-9 (Version None)
Quarter: 2005Q1

REPORT INFORMATION
  Report Type: 
  Country: None (occurrence: None)
  Receive Date: 20050228
  Receipt Date: 20031211
  Transmission Date: 20050727
  Serious: Yes (Death, Congenital Anomaly)
  Sender: FDA-Public Use
  Company Number: 6919

PATIENT
  Sex: Male
  Weight: 0.24 kg

DRUGS (2)
  1. METHOTREXATE [Suspect]
     Indication: PSORIASIS
     Dosage: 7.5 MG DAILY PO
     Route: 048
  2. SERTRALINE HCL [Concomitant]

REACTIONS (24)
  - ABORTION INDUCED [None]
  - BRACHYCEPHALY [None]
  - CLINODACTYLY [None]
  - CONGENITAL ABSENCE OF VERTEBRA [None]
  - CONGENITAL ANOMALY [None]
  - CONGENITAL CHOROID PLEXUS CYST [None]
  - CONGENITAL HAND MALFORMATION [None]
  - CONGENITAL INTESTINAL MALFORMATION [None]
  - CONGENITAL MUSCULOSKELETAL ANOMALY [None]
  - DIVERTICULAR HERNIA [None]
  - DRUG EXPOSURE DURING PREGNANCY [None]
  - FACIAL DYSMORPHISM [None]
  - FONTANELLE BULGING [None]
  - HEPATOMEGALY [None]
  - HYPOPLASTIC LEFT HEART SYNDROME [None]
  - INTRA-UTERINE DEATH [None]
  - MICROGNATHIA [None]
  - MULTIPLE CONGENITAL ABNORMALITIES [None]
  - PULMONARY MALFORMATION [None]
  - SPLEEN MALFORMATION [None]
  - STILLBIRTH [None]
  - TRACHEAL ATRESIA [None]
  - UMBILICAL CORD ABNORMALITY [None]
  - VENTRICULAR SEPTAL DEFECT [None]
